FAERS Safety Report 5131744-4 (Version None)
Quarter: 2006Q4

REPORT INFORMATION
  Report Type: 
  Country: None (occurrence: None)
  Receive Date: 20061016
  Receipt Date: 20061003
  Transmission Date: 20070319
  Serious: Yes (Other)
  Sender: FDA-Public Use
  Company Number: 230645

PATIENT
  Age: 19 Year
  Sex: Male
  Weight: 53 kg

DRUGS (1)
  1. NUTROPIN AQ [Suspect]
     Indication: DRUG USE FOR UNKNOWN INDICATION
     Dosage: 2.5 MG, 6/WEEK, SUBCUTANEOUS
     Route: 058
     Dates: start: 20030911, end: 20060501

REACTIONS (1)
  - CROHN'S DISEASE [None]
